FAERS Safety Report 7338305-7 (Version None)
Quarter: 2011Q1

REPORT INFORMATION
  Report Type: 
  Country: None (occurrence: None)
  Receive Date: 20110308
  Receipt Date: 20110304
  Transmission Date: 20110831
  Serious: Yes (Other)
  Sender: FDA-Public Use
  Company Number: US-PFIZER INC-2011048172

PATIENT
  Age: 57 Year
  Sex: Female

DRUGS (11)
  1. ADDERALL 10 [Concomitant]
     Dosage: UNK
     Dates: end: 20110124
  2. PRAVASTATIN [Concomitant]
     Indication: BLOOD CHOLESTEROL INCREASED
     Dosage: UNK
     Dates: start: 20110124
  3. DEXIDRINE [Concomitant]
     Dosage: UNK
     Dates: start: 20060101
  4. LEXAPRO [Suspect]
     Dosage: 20 MG, 1X/DAY
     Route: 048
     Dates: start: 20060101
  5. LEXAPRO [Suspect]
     Dosage: 30 MG, 1X/DAY
     Route: 048
     Dates: start: 20110124
  6. DEXIDRINE [Concomitant]
     Dosage: UNK
     Dates: start: 20110124
  7. LEXAPRO [Suspect]
     Indication: OBSESSIVE-COMPULSIVE DISORDER
     Dosage: 10 MG, DAILY
     Route: 048
     Dates: start: 20030219, end: 20030225
  8. LEXAPRO [Suspect]
     Indication: DEPRESSION
     Dosage: 20 MG, 1X/DAY
     Route: 048
     Dates: start: 20030226
  9. LEXAPRO [Suspect]
     Dosage: 40 MG, 1X/DAY
     Route: 048
     Dates: start: 20060101, end: 20060101
  10. LIPITOR [Suspect]
     Indication: BLOOD CHOLESTEROL INCREASED
     Dosage: UNK
     Dates: start: 20050101
  11. NADOLOL [Concomitant]
     Indication: HYPERTENSION
     Dosage: UNK

REACTIONS (4)
  - NEPHROLITHIASIS [None]
  - HYPERSOMNIA [None]
  - OVERDOSE [None]
  - MYALGIA [None]
